FAERS Safety Report 8058036-8 (Version None)
Quarter: 2012Q1

REPORT INFORMATION
  Report Type: 
  Country: None (occurrence: None)
  Receive Date: 20120118
  Receipt Date: 20120118
  Transmission Date: 20120608
  Serious: No
  Sender: FDA-Public Use
  Company Number: None

PATIENT
  Sex: Female
  Weight: 77.8 kg

DRUGS (2)
  1. TAXOL [Suspect]
     Dosage: 147 MG
     Dates: end: 20120112
  2. CARBOPLATIN [Suspect]
     Dosage: 707 MG
     Dates: end: 20120112

REACTIONS (2)
  - INFUSION RELATED REACTION [None]
  - BACK PAIN [None]
